FAERS Safety Report 8442378-8 (Version None)
Quarter: 2012Q2

REPORT INFORMATION
  Report Type: 
  Country: None (occurrence: None)
  Receive Date: 20120615
  Receipt Date: 20120105
  Transmission Date: 20120825
  Serious: No
  Sender: FDA-Public Use
  Company Number: US-NOVEN-12US003897

PATIENT
  Age: 7 Year
  Sex: Male

DRUGS (4)
  1. SINGULAIR [Concomitant]
     Indication: ASTHMA
  2. DAYTRANA [Suspect]
     Indication: ATTENTION DEFICIT/HYPERACTIVITY DISORDER
     Dosage: 10 MG, QD
     Route: 062
     Dates: start: 20110101
  3. TENEX [Concomitant]
     Indication: TIC
  4. FLONASE [Concomitant]
     Indication: ASTHMA

REACTIONS (2)
  - SLEEP TERROR [None]
  - LOGORRHOEA [None]
